FAERS Safety Report 23648429 (Version 2)
Quarter: 2024Q1

REPORT INFORMATION
  Report Type: Report from Study
  Country: CA (occurrence: CA)
  Receive Date: 20240319
  Receipt Date: 20240325
  Transmission Date: 20240410
  Serious: Yes (Other)
  Sender: FDA-Public Use
  Company Number: CA-BIOCON BIOLOGICS LIMITED-BBL2023001907

PATIENT

DRUGS (1)
  1. HULIO [Suspect]
     Active Substance: ADALIMUMAB-FKJP
     Indication: Colitis ulcerative
     Dosage: 40 MG, BIWEEKLY
     Route: 058
     Dates: start: 20240204

REACTIONS (9)
  - Mental impairment [Unknown]
  - Adverse drug reaction [Unknown]
  - Weight increased [Unknown]
  - Ear pain [Recovered/Resolved]
  - Crying [Unknown]
  - Malaise [Unknown]
  - Headache [Unknown]
  - Eye infection [Unknown]
  - Product prescribing error [Unknown]
